FAERS Safety Report 7231784-5 (Version None)
Quarter: 2011Q1

REPORT INFORMATION
  Report Type: 
  Country: None (occurrence: None)
  Receive Date: 20110107
  Receipt Date: 20101229
  Transmission Date: 20110831
  Serious: Yes (Death, Hospitalization)
  Sender: FDA-Public Use
  Company Number: CIP10002828

PATIENT
  Age: 70 Year
  Sex: Female

DRUGS (8)
  1. ESTAZOLAM [Concomitant]
  2. DOGMATYL (SULPIRIDE) [Concomitant]
  3. ACTONEL [Suspect]
     Indication: OSTEOPOROSIS
     Dosage: 17.5 MG ONCE WEEKLY, ORAL
     Route: 048
     Dates: start: 20100101, end: 20101101
  4. ALEVIATIN /00017401/ (PHENYTOIN) [Concomitant]
  5. PHENOBARBITAL TAB [Concomitant]
  6. LIPITOR [Concomitant]
  7. ANNACA /00190001/ (CAFFEINE AND SODIUM BENZOATE) [Concomitant]
  8. PANTOSIN (PANTETHINE) [Concomitant]

REACTIONS (13)
  - HEPATIC ATROPHY [None]
  - HEPATOCELLULAR INJURY [None]
  - HAEMATEMESIS [None]
  - HYPERHIDROSIS [None]
  - SHOCK HAEMORRHAGIC [None]
  - RESPIRATORY ARREST [None]
  - BLOOD PRESSURE DECREASED [None]
  - COAGULOPATHY [None]
  - LYMPHOCYTE PERCENTAGE DECREASED [None]
  - BLOOD ALBUMIN DECREASED [None]
  - BLOOD UREA INCREASED [None]
  - ASCITES [None]
  - HEPATITIS CHOLESTATIC [None]
